FAERS Safety Report 21422001 (Version 1)
Quarter: 2022Q4

REPORT INFORMATION
  Report Type: Spontaneous
  Country: GB (occurrence: GB)
  Receive Date: 20221007
  Receipt Date: 20221007
  Transmission Date: 20230112
  Serious: Yes (Other)
  Sender: FDA-Public Use
  Company Number: None

PATIENT
  Age: 64 Year
  Sex: Female
  Weight: 70 kg

DRUGS (8)
  1. AMLODIPINE [Suspect]
     Active Substance: AMLODIPINE BESYLATE
     Indication: Hypertension
     Dosage: 5MG, TAKE ONE DAILY **ANNUAL BLOOD TEST**
     Dates: start: 20220805, end: 20220830
  2. CLARITHROMYCIN [Concomitant]
     Active Substance: CLARITHROMYCIN
     Dosage: TAKE ONE EVERY 12 HRS
     Dates: start: 20220916, end: 20220923
  3. FLUCLOXACILLIN [Concomitant]
     Active Substance: FLUCLOXACILLIN
     Dosage: TAKE ONE 4 TIMES/DAY
     Dates: start: 20220905, end: 20220908
  4. LANSOPRAZOLE [Concomitant]
     Active Substance: LANSOPRAZOLE
     Dosage: TAKE ONE ONCE DAILY
     Dates: start: 20220725
  5. METRONIDAZOLE [Concomitant]
     Active Substance: METRONIDAZOLE
     Dosage: TAKE ONE 3 TIMES/DAY
     Dates: start: 20220916, end: 20220923
  6. ACETAMINOPHEN [Concomitant]
     Active Substance: ACETAMINOPHEN
     Dosage: 2 FOUR TIMES DAILY
     Dates: start: 20220725
  7. RAMIPRIL [Concomitant]
     Active Substance: RAMIPRIL
     Dosage: TAKE ONE DAILY **ANNUAL BLOOD TEST**
     Dates: start: 20220830
  8. AMLODIPINE [Suspect]
     Active Substance: AMLODIPINE BESYLATE
     Indication: Hypertension
     Dates: start: 20220920

REACTIONS (2)
  - Oedema peripheral [Recovered/Resolved]
  - Skin ulcer [Not Recovered/Not Resolved]

NARRATIVE: CASE EVENT DATE: 20220808
